FAERS Safety Report 8840037 (Version 1)
Quarter: 2012Q4

REPORT INFORMATION
  Report Type: 
  Country: US (occurrence: US)
  Receive Date: 20121015
  Receipt Date: 20121015
  Transmission Date: 20130627
  Serious: No
  Sender: FDA-Public Use
  Company Number: US-PFIZER INC-2012254813

PATIENT
  Sex: Female

DRUGS (2)
  1. PRISTIQ [Suspect]
     Dosage: 50 mg, UNK
     Dates: start: 201210
  2. PAXIL [Suspect]
     Dosage: UNK
     Dates: end: 201210

REACTIONS (4)
  - Pollakiuria [Unknown]
  - Drug ineffective [Unknown]
  - Abnormal behaviour [Unknown]
  - Screaming [Unknown]
